FAERS Safety Report 9531228 (Version 1)
Quarter: 2013Q2

REPORT INFORMATION
  Report Type: Spontaneous
  Country: US (occurrence: None)
  Receive Date: 20130418
  Receipt Date: 20130418
  Transmission Date: 20140414
  Serious: Yes (Other)
  Sender: FDA-Public Use
  Company Number: 1301USA003691

PATIENT
  Age: 54 Year
  Sex: Male

DRUGS (9)
  1. SINGULAIR (MONTELUKAST SODIUM) TABLET [Suspect]
     Indication: ASTHMA
     Route: 048
  2. PREDNISONE (PREDNISONE) [Suspect]
     Route: 048
  3. AVELOX (MOXIFLOCACIN HYDROCHLORIDE) [Suspect]
  4. FEXOFENADINE HYDROCHLORIDE [Concomitant]
  5. FLONASE (FLUTICASONE PROPIONATE) [Concomitant]
  6. PROAIR HFA (ALBUTEROL SULFATE) [Concomitant]
  7. QVAR (BECLOMETHASONE DIPROPIONATE) [Concomitant]
  8. SYMBICORT [Concomitant]
  9. ADVAIR (FLUTICASONE PROPIONATE, SALMETEROL XINAFOATE) [Concomitant]

REACTIONS (3)
  - Anxiety [None]
  - Agitation [None]
  - Insomnia [None]
